FAERS Safety Report 5854202-8 (Version None)
Quarter: 2008Q3

REPORT INFORMATION
  Report Type: 
  Country: None (occurrence: None)
  Receive Date: 20080822
  Receipt Date: 20080813
  Transmission Date: 20090109
  Serious: Yes (Death, Other)
  Sender: FDA-Public Use
  Company Number: US-TEVA-176023USA

PATIENT

DRUGS (1)
  1. AZILECT [Suspect]

REACTIONS (1)
  - PNEUMONIA [None]
